FAERS Safety Report 11343537 (Version 1)
Quarter: 2015Q3

REPORT INFORMATION
  Report Type: Spontaneous
  Country: US (occurrence: US)
  Receive Date: 20150806
  Receipt Date: 20150806
  Transmission Date: 20151125
  Serious: No
  Sender: FDA-Public Use
  Company Number: US-BRISTOL-MYERS SQUIBB COMPANY-BMS-2015-051495

PATIENT
  Sex: Male

DRUGS (9)
  1. XENAZINE [Concomitant]
     Active Substance: TETRABENAZINE
     Dosage: HALF OF A TABLET, QD
     Route: 048
     Dates: start: 20150318
  2. XENAZINE [Concomitant]
     Active Substance: TETRABENAZINE
     Dosage: THREE FOURTH TABLET
     Route: 048
     Dates: start: 20150318
  3. INTUNIV [Concomitant]
     Active Substance: GUANFACINE HYDROCHLORIDE
     Indication: PRODUCT USED FOR UNKNOWN INDICATION
     Dosage: UNK
     Route: 065
  4. XENAZINE [Concomitant]
     Active Substance: TETRABENAZINE
     Dosage: 12.5 MG, QD
     Route: 048
     Dates: start: 20150318
  5. AMITRIPTYLINE [Concomitant]
     Active Substance: AMITRIPTYLINE
     Indication: PRODUCT USED FOR UNKNOWN INDICATION
     Route: 065
  6. VYVANSE [Concomitant]
     Active Substance: LISDEXAMFETAMINE DIMESYLATE
     Indication: PRODUCT USED FOR UNKNOWN INDICATION
     Route: 065
  7. ABILIFY [Suspect]
     Active Substance: ARIPIPRAZOLE
     Indication: PRODUCT USED FOR UNKNOWN INDICATION
     Route: 065
  8. XENAZINE [Concomitant]
     Active Substance: TETRABENAZINE
     Indication: TOURETTE^S DISORDER
     Dosage: QUARTER TABLET, QD
     Route: 048
     Dates: start: 20150318, end: 20150414
  9. XENAZINE [Concomitant]
     Active Substance: TETRABENAZINE
     Dosage: HALF OF A TABLET DAILY
     Route: 048
     Dates: end: 20150414

REACTIONS (1)
  - Dystonia [Recovered/Resolved]
